FAERS Safety Report 12429549 (Version 2)
Quarter: 2016Q4

REPORT INFORMATION
  Report Type: Spontaneous
  Country: GB (occurrence: GB)
  Receive Date: 20160602
  Receipt Date: 20161110
  Transmission Date: 20170207
  Serious: No
  Sender: FDA-Public Use
  Company Number: GB-MYLANLABS-2016M1021998

PATIENT

DRUGS (1)
  1. CLARITHROMYCIN. [Suspect]
     Active Substance: CLARITHROMYCIN
     Indication: ANTIBIOTIC PROPHYLAXIS
     Dosage: 500 MG, BID
     Route: 048
     Dates: start: 20160506, end: 20160507

REACTIONS (3)
  - Malaise [Recovered/Resolved]
  - Myopathy [Recovered/Resolved]
  - Arthralgia [Unknown]

NARRATIVE: CASE EVENT DATE: 20160507
